FAERS Safety Report 22764042 (Version 3)
Quarter: 2024Q2

REPORT INFORMATION
  Report Type: Report from Study
  Country: CA (occurrence: CA)
  Receive Date: 20230730
  Receipt Date: 20240620
  Transmission Date: 20240715
  Serious: Yes (Hospitalization)
  Sender: FDA-Public Use
  Company Number: CA-Vifor (International) Inc.-VIT-2023-05477

PATIENT
  Age: 87 Year
  Sex: Female

DRUGS (1)
  1. AVACOPAN [Suspect]
     Active Substance: AVACOPAN
     Indication: Product used for unknown indication
     Dosage: TAKE 3 CAPSULES ORALLY TWICE A DAY WITH FOOD.
     Route: 048
     Dates: start: 20230419, end: 20240606

REACTIONS (3)
  - Fall [Unknown]
  - Hip arthroplasty [Recovering/Resolving]
  - Therapy cessation [Unknown]

NARRATIVE: CASE EVENT DATE: 20230714
